FAERS Safety Report 7504869-3 (Version None)
Quarter: 2011Q2

REPORT INFORMATION
  Report Type: 
  Country: None (occurrence: None)
  Receive Date: 20110526
  Receipt Date: 20110520
  Transmission Date: 20111010
  Serious: Yes (Death, Hospitalization)
  Sender: FDA-Public Use
  Company Number: BR-BRISTOL-MYERS SQUIBB COMPANY-15745235

PATIENT
  Age: 63 Year
  Sex: Male
  Weight: 89 kg

DRUGS (4)
  1. HYDROCHLOROTHIAZIDE [Concomitant]
     Dates: start: 20110428
  2. CISPLATIN [Suspect]
     Indication: NON-SMALL CELL LUNG CANCER
     Dosage: INF:3 CYC:3 LAST DOSE:28APR11
     Route: 065
     Dates: start: 20110317
  3. GEMZAR [Suspect]
     Indication: NON-SMALL CELL LUNG CANCER
     Dosage: VIAL INF:5 CYCLE:3 LAST DOSE:28APR11
     Route: 065
     Dates: start: 20110317
  4. CAPTOPRIL [Concomitant]
     Dates: start: 20110428

REACTIONS (2)
  - RENAL FAILURE [None]
  - OEDEMA [None]
